FAERS Safety Report 4282938-1 (Version None)
Quarter: 2004Q1

REPORT INFORMATION
  Report Type: 
  Country: None (occurrence: None)
  Receive Date: 20040130
  Receipt Date: 20040126
  Transmission Date: 20041129
  Serious: Yes (Hospitalization)
  Sender: FDA-Public Use
  Company Number: GB-ROCHE-357211

PATIENT
  Age: 52 Year
  Sex: Male
  Weight: 90 kg

DRUGS (1)
  1. MEFLOQUINE HCL [Suspect]
     Indication: MALARIA PROPHYLAXIS
     Dosage: PATIENT TOOK ONLY ONE DOSE OF MEFLOQUINE.
     Route: 048
     Dates: start: 20031217, end: 20031217

REACTIONS (1)
  - GLOBAL AMNESIA [None]
